FAERS Safety Report 23253284 (Version 1)
Quarter: 2023Q4

REPORT INFORMATION
  Report Type: Spontaneous
  Country: FR (occurrence: FR)
  Receive Date: 20231202
  Receipt Date: 20231202
  Transmission Date: 20240109
  Serious: Yes (Death, Other)
  Sender: FDA-Public Use
  Company Number: FR-CELLTRION INC.-2023FR022924

PATIENT

DRUGS (4)
  1. RITUXIMAB [Interacting]
     Active Substance: RITUXIMAB
     Indication: Hairy cell leukaemia
     Dosage: NUMBER OF UNITS IN THE INTERVAL: 29 DAYS
     Dates: start: 20230726, end: 20230823
  2. BACTRIM [Suspect]
     Active Substance: SULFAMETHOXAZOLE\TRIMETHOPRIM
     Indication: Product used for unknown indication
     Dosage: UNK
     Route: 048
     Dates: start: 202307
  3. VALACYCLOVIR HYDROCHLORIDE [Suspect]
     Active Substance: VALACYCLOVIR HYDROCHLORIDE
     Indication: Product used for unknown indication
     Dosage: UNK
     Route: 048
     Dates: start: 202307
  4. CLADRIBINE [Interacting]
     Active Substance: CLADRIBINE
     Indication: Hairy cell leukaemia
     Dosage: 2MG/ML
     Dates: start: 20230726, end: 20230823

REACTIONS (4)
  - Drug interaction [Fatal]
  - Febrile bone marrow aplasia [Fatal]
  - Aspergillus infection [Fatal]
  - Intentional product use issue [Unknown]

NARRATIVE: CASE EVENT DATE: 20230726
